FAERS Safety Report 13118813 (Version 1)
Quarter: 2017Q1

REPORT INFORMATION
  Report Type: Spontaneous
  Country: US (occurrence: US)
  Receive Date: 20170116
  Receipt Date: 20170116
  Transmission Date: 20170428
  Serious: Yes (Other)
  Sender: FDA-Public Use
  Company Number: US-ELI_LILLY_AND_COMPANY-US201701002099

PATIENT
  Age: 61 Year
  Sex: Female

DRUGS (1)
  1. HUMATROPE [Suspect]
     Active Substance: SOMATROPIN
     Indication: GROWTH HORMONE DEFICIENCY
     Dosage: 0.3 MG, UNKNOWN
     Route: 065

REACTIONS (17)
  - Nausea [Unknown]
  - Feeling abnormal [Unknown]
  - Dizziness [Unknown]
  - Formication [Unknown]
  - Deafness [Not Recovered/Not Resolved]
  - Tinnitus [Unknown]
  - Hypoaesthesia [Unknown]
  - Vertigo [Recovered/Resolved]
  - Influenza like illness [Unknown]
  - Lethargy [Unknown]
  - Infection parasitic [Unknown]
  - Fatigue [Unknown]
  - Ear disorder [Not Recovered/Not Resolved]
  - Hypoacusis [Unknown]
  - Nerve injury [Unknown]
  - Anxiety [Unknown]
  - Body temperature decreased [Unknown]

NARRATIVE: CASE EVENT DATE: 201607
